APPROVED DRUG PRODUCT: CETIRIZINE HYDROCHLORIDE ALLERGY
Active Ingredient: CETIRIZINE HYDROCHLORIDE
Strength: 10MG
Dosage Form/Route: CAPSULE;ORAL
Application: A205291 | Product #001
Applicant: ONESOURCE SPECIALTY PTE LTD
Approved: Jul 21, 2017 | RLD: No | RS: No | Type: OTC